FAERS Safety Report 12070536 (Version 1)
Quarter: 2016Q1

REPORT INFORMATION
  Report Type: Spontaneous
  Country: US (occurrence: US)
  Receive Date: 20160211
  Receipt Date: 20160211
  Transmission Date: 20160526
  Serious: No
  Sender: FDA-Public Use
  Company Number: US-AKRON, INC.-1047708

PATIENT
  Sex: Male
  Weight: 79.55 kg

DRUGS (1)
  1. CLOBETASOL PROPIONATE CREAM [Suspect]
     Active Substance: CLOBETASOL PROPIONATE

REACTIONS (1)
  - Application site erythema [Recovering/Resolving]
